FAERS Safety Report 10642095 (Version 1)
Quarter: 2014Q4

REPORT INFORMATION
  Report Type: Spontaneous
  Country: US (occurrence: US)
  Receive Date: 20141210
  Receipt Date: 20141210
  Transmission Date: 20150529
  Serious: Yes (Other)
  Sender: FDA-Public Use
  Company Number: US-SUN PHARMACEUTICAL INDUSTRIES LTD-2014SUN02759

PATIENT
  Age: 40 Year
  Sex: Female

DRUGS (3)
  1. CARVEDILOL 3.125 MG TABLET [Suspect]
     Active Substance: CARVEDILOL
     Indication: ISCHAEMIC CARDIOMYOPATHY
     Route: 065
  2. METOPROLOL TARTATE [Suspect]
     Active Substance: METOPROLOL TARTRATE
     Indication: ISCHAEMIC CARDIOMYOPATHY
     Route: 065
  3. CARVEDILOL 3.125 MG TABLET [Suspect]
     Active Substance: CARVEDILOL
     Dosage: 12.5 MG, BID
     Route: 065

REACTIONS (3)
  - Pruritus [Recovered/Resolved]
  - Rash vesicular [Recovered/Resolved]
  - Angioedema [Recovered/Resolved]
